FAERS Safety Report 12173660 (Version 1)
Quarter: 2016Q1

REPORT INFORMATION
  Report Type: Spontaneous
  Country: US (occurrence: None)
  Receive Date: 20160311
  Receipt Date: 20160311
  Transmission Date: 20160526
  Serious: No
  Sender: FDA-Public Use
  Company Number: None

PATIENT
  Age: 68 Year
  Sex: Female

DRUGS (3)
  1. PREDNISONE. [Suspect]
     Active Substance: PREDNISONE
  2. TOUJEO [Suspect]
     Active Substance: INSULIN GLARGINE
  3. NOVOLOG [Suspect]
     Active Substance: INSULIN ASPART

REACTIONS (3)
  - Liver function test abnormal [None]
  - Hot flush [None]
  - Blood glucose increased [None]
